FAERS Safety Report 5333845-4 (Version None)
Quarter: 2007Q2

REPORT INFORMATION
  Report Type: 
  Country: None (occurrence: None)
  Receive Date: 20070306
  Receipt Date: 20060815
  Transmission Date: 20071010
  Serious: Yes (Other)
  Sender: FDA-Public Use
  Company Number: A03200605185

PATIENT
  Sex: Female

DRUGS (4)
  1. PLAVIX [Suspect]
     Indication: MYOCARDIAL INFARCTION
     Dosage: 75 MG QD - ORAL
     Route: 048
  2. METOPROLOL TARTRATE [Concomitant]
  3. ACETYLSALICYLIC ACID SRT [Concomitant]
  4. PANTOPRAZOLE SODIUM [Concomitant]

REACTIONS (3)
  - ANGINA PECTORIS [None]
  - BLEEDING TIME PROLONGED [None]
  - CHEST PAIN [None]
